FAERS Safety Report 22006779 (Version 1)
Quarter: 2023Q1

REPORT INFORMATION
  Report Type: Spontaneous
  Country: TW (occurrence: None)
  Receive Date: 20230217
  Receipt Date: 20230217
  Transmission Date: 20230418
  Serious: Yes (Other)
  Sender: FDA-Public Use
  Company Number: 2023A036512

PATIENT
  Age: 54 Year
  Sex: Female

DRUGS (3)
  1. OSIMERTINIB [Suspect]
     Active Substance: OSIMERTINIB
     Indication: Lung adenocarcinoma stage IV
     Route: 048
     Dates: start: 2018
  2. OSIMERTINIB [Suspect]
     Active Substance: OSIMERTINIB
     Indication: Acquired gene mutation
     Route: 048
     Dates: start: 2018
  3. ERLOTINIB [Concomitant]
     Active Substance: ERLOTINIB
     Indication: EGFR gene mutation
     Dates: start: 2016

REACTIONS (1)
  - Malignant neoplasm progression [Unknown]
